FAERS Safety Report 9359270 (Version 2)
Quarter: 2013Q3

REPORT INFORMATION
  Report Type: Spontaneous
  Country: US (occurrence: US)
  Receive Date: 20130620
  Receipt Date: 20130813
  Transmission Date: 20140515
  Serious: Yes (Other)
  Sender: FDA-Public Use
  Company Number: US-PFIZER INC-2013185687

PATIENT
  Age: 62 Year
  Sex: Female
  Weight: 98 kg

DRUGS (3)
  1. PRISTIQ [Suspect]
     Indication: DEPRESSION
     Dosage: 50 MG, 1X/DAY
     Route: 048
     Dates: start: 201101, end: 201306
  2. PRISTIQ [Suspect]
     Dosage: 100 MG (TWO 50MG TABLETS), 1X/DAY
     Route: 048
     Dates: start: 201306, end: 201306
  3. PRISTIQ [Suspect]
     Dosage: 50 MG, 1X/DAY
     Route: 048
     Dates: start: 201306

REACTIONS (3)
  - Mania [Unknown]
  - Abnormal behaviour [Unknown]
  - Drug ineffective [Unknown]
